FAERS Safety Report 23906783 (Version 1)
Quarter: 2024Q2

REPORT INFORMATION
  Report Type: Spontaneous
  Country: CA (occurrence: CA)
  Receive Date: 20240528
  Receipt Date: 20240528
  Transmission Date: 20240716
  Serious: Yes (Other)
  Sender: FDA-Public Use
  Company Number: CA-TAKEDA-2024TUS051881

PATIENT
  Age: 15 Year
  Sex: Female

DRUGS (1)
  1. COLCHICINE [Suspect]
     Active Substance: COLCHICINE
     Indication: Product used for unknown indication
     Dosage: UNK
     Route: 048

REACTIONS (6)
  - Intentional overdose [Unknown]
  - Multiple organ dysfunction syndrome [Recovering/Resolving]
  - Hepatic function abnormal [Recovering/Resolving]
  - Coagulopathy [Recovered/Resolved]
  - Lactic acidosis [Unknown]
  - Pancytopenia [Recovering/Resolving]
